FAERS Safety Report 9605077 (Version 2)
Quarter: 2013Q4

REPORT INFORMATION
  Report Type: Report from Study
  Country: JP (occurrence: JP)
  Receive Date: 20131008
  Receipt Date: 20131104
  Transmission Date: 20140711
  Serious: Yes (Hospitalization)
  Sender: FDA-Public Use
  Company Number: JP-TAKEDA-TCI2013A05927

PATIENT
  Age: 81 Year
  Sex: Male
  Weight: 59 kg

DRUGS (15)
  1. LANSOPRAZOLE [Suspect]
     Indication: PROPHYLAXIS AGAINST GASTROINTESTINAL ULCER
     Dosage: 15 MG, 1 DAYS
     Route: 048
     Dates: start: 20110916, end: 20120501
  2. LANSOPRAZOLE [Suspect]
     Dosage: 30 MG, 1 DAYS
     Route: 048
     Dates: start: 20120502
  3. BAYASPIRIN [Concomitant]
     Indication: THROMBOSIS PROPHYLAXIS
     Dosage: 100 MG, 1 DAYS
     Route: 048
  4. BAYASPIRIN [Concomitant]
     Route: 048
  5. PLAVIX [Concomitant]
     Indication: POSTOPERATIVE CARE
     Dosage: 75 MG, 1 DAYS
     Route: 048
  6. AMLODIN [Concomitant]
     Dosage: 10 MG, 1 DAYS
     Route: 048
     Dates: end: 20120529
  7. AMLODIN [Concomitant]
     Dosage: 5 MG, 1 DAYS
     Route: 048
     Dates: start: 20120801
  8. HALCION [Concomitant]
     Indication: INSOMNIA
     Dosage: 0.25 MG, 1 DAYS
     Route: 048
  9. FOIPAN [Concomitant]
     Indication: PANCREATITIS CHRONIC
     Dosage: 600 MG, 1 DAYS
     Route: 048
  10. FOIPAN [Concomitant]
     Route: 048
  11. PLETAAL [Concomitant]
     Indication: POSTOPERATIVE CARE
     Dosage: 100 MG, 1 DAYS
     Route: 048
  12. FUROSEMIDE [Concomitant]
     Indication: HYPERTENSION
     Dosage: 20 MG, 1DAYS
     Route: 048
     Dates: start: 20111118
  13. AMOBAN [Concomitant]
     Indication: INSOMNIA
     Dosage: 7.5 MG, 1 DAYS
     Route: 048
     Dates: start: 20130621
  14. CELECOX [Suspect]
     Dosage: 200 MG, 1 DAYS
     Route: 048
     Dates: start: 20111219
  15. CONSTAN 0.4MG.TABLETS [Concomitant]
     Indication: ANXIETY DISORDER
     Dosage: 0.8 MG, 1 DAYS
     Route: 048

REACTIONS (4)
  - Traumatic fracture [Recovering/Resolving]
  - Road traffic accident [Recovered/Resolved]
  - Traumatic ulcer [Recovering/Resolving]
  - Abdominal discomfort [Recovering/Resolving]
